FAERS Safety Report 19271460 (Version 2)
Quarter: 2021Q3

REPORT INFORMATION
  Report Type: Spontaneous
  Country: FR (occurrence: FR)
  Receive Date: 20210518
  Receipt Date: 20210702
  Transmission Date: 20211014
  Serious: Yes (Hospitalization)
  Sender: FDA-Public Use
  Company Number: FR-TAKEDA-2021TUS030731

PATIENT
  Age: 46 Year
  Sex: Male
  Weight: 105 kg

DRUGS (2)
  1. VEYVONDI [Suspect]
     Active Substance: VONICOG ALFA
     Indication: PRODUCT USED FOR UNKNOWN INDICATION
     Dosage: UNK
     Route: 065
     Dates: start: 20210426, end: 20210428
  2. VEYVONDI [Suspect]
     Active Substance: VONICOG ALFA
     Dosage: 5200 INTERNATIONAL UNIT, Q12H
     Route: 041
     Dates: start: 20210426, end: 20210427

REACTIONS (2)
  - Feeling hot [Recovered/Resolved]
  - Malaise [Recovered/Resolved]

NARRATIVE: CASE EVENT DATE: 20210426
